FAERS Safety Report 7324695-8 (Version None)
Quarter: 2011Q1

REPORT INFORMATION
  Report Type: 
  Country: None (occurrence: None)
  Receive Date: 20110214
  Receipt Date: 20110207
  Transmission Date: 20110831
  Serious: Yes (Other)
  Sender: FDA-Public Use
  Company Number: 2011027467

PATIENT
  Age: 12 Year
  Sex: Female

DRUGS (2)
  1. VIVAGLOBIN [Suspect]
     Indication: IMMUNODEFICIENCY COMMON VARIABLE
     Dosage: (4 G 1X/WEEK, INFUSED VIA TWO SITES IN POSTERIOR ARMS 1 SITE EACH SUBCUTANEOUS) (SUBCUTANEOUS)
     Route: 058
     Dates: start: 20110115
  2. VIVAGLOBIN [Suspect]
     Indication: IMMUNODEFICIENCY COMMON VARIABLE
     Dosage: (4 G 1X/WEEK, INFUSED VIA TWO SITES IN POSTERIOR ARMS 1 SITE EACH SUBCUTANEOUS) (SUBCUTANEOUS)
     Route: 058
     Dates: start: 20110115

REACTIONS (5)
  - PRODUCT CONTAMINATION MICROBIAL [None]
  - INFUSION SITE SWELLING [None]
  - INFUSION SITE ERYTHEMA [None]
  - PRODUCT QUALITY ISSUE [None]
  - INFECTION [None]
